FAERS Safety Report 18388619 (Version 1)
Quarter: 2020Q4

REPORT INFORMATION
  Report Type: Spontaneous
  Country: NL (occurrence: NL)
  Receive Date: 20201015
  Receipt Date: 20201015
  Transmission Date: 20210114
  Serious: Yes (Disabling)
  Sender: FDA-Public Use
  Company Number: NL-MYLANLABS-2020M1086068

PATIENT
  Sex: Male
  Weight: 85 kg

DRUGS (2)
  1. METFORMINE MYLAN [Suspect]
     Active Substance: METFORMIN HYDROCHLORIDE
     Indication: DIABETES MELLITUS
     Dosage: 500 MILLIGRAM, QD (1X PER DAG 1 TABLET)
     Dates: start: 20200724, end: 20200807
  2. HYDROCHLOORTHIAZIDE [Concomitant]
     Active Substance: HYDROCHLOROTHIAZIDE
     Dosage: 25 MILLIGRAM

REACTIONS (5)
  - Fatigue [Not Recovered/Not Resolved]
  - Liver function test abnormal [Not Recovered/Not Resolved]
  - Pruritus [Not Recovered/Not Resolved]
  - Weight decreased [Not Recovered/Not Resolved]
  - Jaundice [Not Recovered/Not Resolved]
